FAERS Safety Report 11099782 (Version 1)
Quarter: 2015Q2

REPORT INFORMATION
  Report Type: Spontaneous
  Country: US (occurrence: US)
  Receive Date: 20150508
  Receipt Date: 20150508
  Transmission Date: 20150821
  Serious: Yes (Hospitalization, Disabling, Other)
  Sender: FDA-Public Use
  Company Number: US-009507513-1204USA00501

PATIENT
  Sex: Female
  Weight: 54.42 kg

DRUGS (6)
  1. FOSAMAX [Suspect]
     Active Substance: ALENDRONATE SODIUM
     Indication: OSTEOPOROSIS PROPHYLAXIS
     Route: 048
     Dates: start: 2006, end: 2009
  2. FOSAMAX PLUS D [Suspect]
     Active Substance: ALENDRONATE SODIUM\CHOLECALCIFEROL
     Indication: OSTEOPOROSIS
  3. FOSAMAX [Suspect]
     Active Substance: ALENDRONATE SODIUM
     Indication: OSTEOPOROSIS PROPHYLAXIS
     Route: 048
     Dates: start: 2006, end: 2009
  4. FOSAMAX [Suspect]
     Active Substance: ALENDRONATE SODIUM
     Indication: OSTEOPOROSIS
  5. FOSAMAX PLUS D [Suspect]
     Active Substance: ALENDRONATE SODIUM\CHOLECALCIFEROL
     Indication: OSTEOPOROSIS PROPHYLAXIS
     Dosage: 70MG-2800IU, QW
     Route: 048
     Dates: start: 20060421, end: 20090114
  6. FOSAMAX [Suspect]
     Active Substance: ALENDRONATE SODIUM
     Indication: OSTEOPOROSIS

REACTIONS (19)
  - Road traffic accident [Unknown]
  - Intervertebral disc degeneration [Unknown]
  - Anxiety [Unknown]
  - Deep vein thrombosis [Unknown]
  - Bone disorder [Unknown]
  - Spinal compression fracture [Unknown]
  - Abdominal pain upper [Unknown]
  - Femur fracture [Not Recovered/Not Resolved]
  - Intramedullary rod insertion [Unknown]
  - Deep vein thrombosis [Unknown]
  - Irritable bowel syndrome [Unknown]
  - Hysterectomy [Unknown]
  - Bronchitis chronic [Not Recovered/Not Resolved]
  - Mitral valve prolapse [Unknown]
  - Femur fracture [Recovering/Resolving]
  - Depression [Unknown]
  - Muscle strain [Unknown]
  - Bursitis [Unknown]
  - Peptic ulcer [Unknown]

NARRATIVE: CASE EVENT DATE: 200712
